FAERS Safety Report 20695933 (Version 5)
Quarter: 2022Q3

REPORT INFORMATION
  Report Type: Spontaneous
  Country: US (occurrence: US)
  Receive Date: 20220411
  Receipt Date: 20220719
  Transmission Date: 20221027
  Serious: Yes (Hospitalization, Other)
  Sender: FDA-Public Use
  Company Number: PVI-US-2022-013543

PATIENT
  Sex: Male

DRUGS (5)
  1. LEVOTHYROXINE SODIUM [Suspect]
     Active Substance: LEVOTHYROXINE SODIUM
     Indication: Product used for unknown indication
     Dosage: 5 MILLIGRAM, ONCE DAILY
     Route: 048
  2. ENTRESTO [Suspect]
     Active Substance: SACUBITRIL\VALSARTAN
     Indication: Product used for unknown indication
     Dosage: HALF TAB 49/51 MG
     Route: 048
     Dates: start: 20220215
  3. LISINOPRIL [Suspect]
     Active Substance: LISINOPRIL
     Indication: Blood pressure measurement
     Dosage: 10 MILLIGRAM, ONCE DAILY
     Route: 048
     Dates: start: 2020
  4. FUROSEMIDE [Suspect]
     Active Substance: FUROSEMIDE
     Indication: Product used for unknown indication
     Dosage: 40 MILLIGRAM, TWICE A DAY
     Route: 048
     Dates: start: 2020
  5. METHIMAZOLE [Suspect]
     Active Substance: METHIMAZOLE
     Indication: Thyroid disorder
     Dosage: UNK
     Route: 065
     Dates: start: 201807, end: 2022

REACTIONS (16)
  - Hospitalisation [Recovering/Resolving]
  - Pulmonary oedema [Unknown]
  - Spinal fracture [Unknown]
  - Hand fracture [Unknown]
  - Atrial fibrillation [Unknown]
  - Back pain [Not Recovered/Not Resolved]
  - Cough [Not Recovered/Not Resolved]
  - Peripheral swelling [Recovered/Resolved]
  - Pollakiuria [Unknown]
  - Dyspnoea paroxysmal nocturnal [Recovered/Resolved]
  - Thyroid disorder [Unknown]
  - Road traffic accident [Unknown]
  - Weight increased [Unknown]
  - Insomnia [Recovered/Resolved]
  - Hypotension [Unknown]
  - Dyspnoea paroxysmal nocturnal [Recovered/Resolved]

NARRATIVE: CASE EVENT DATE: 20180101
